FAERS Safety Report 23630472 (Version 1)
Quarter: 2024Q1

REPORT INFORMATION
  Report Type: Spontaneous
  Country: US (occurrence: US)
  Receive Date: 20240314
  Receipt Date: 20240314
  Transmission Date: 20240409
  Serious: No
  Sender: FDA-Public Use
  Company Number: US-ALVOGEN-2023089555

PATIENT

DRUGS (1)
  1. BUPRENORPHINE HYDROCHLORIDE AND NALOXONE HYDROCHLORIDE [Suspect]
     Active Substance: BUPRENORPHINE HYDROCHLORIDE\NALOXONE HYDROCHLORIDE
     Indication: Product used for unknown indication
     Dosage: 8MG/2MG
     Dates: start: 202009

REACTIONS (11)
  - Muscle spasms [Unknown]
  - Hypertension [Unknown]
  - Rash [Unknown]
  - Hot flush [Unknown]
  - Lacrimation increased [Unknown]
  - Tremor [Unknown]
  - Nausea [Unknown]
  - Dizziness [Unknown]
  - Infection [Unknown]
  - Withdrawal syndrome [Unknown]
  - Drug ineffective [Unknown]
